FAERS Safety Report 10554846 (Version 4)
Quarter: 2015Q1

REPORT INFORMATION
  Report Type: Spontaneous
  Country: US (occurrence: US)
  Receive Date: 20141030
  Receipt Date: 20150226
  Transmission Date: 20150720
  Serious: Yes (Hospitalization, Other)
  Sender: FDA-Public Use
  Company Number: US-PFIZER INC-2014297241

PATIENT
  Age: 73 Year
  Sex: Female
  Weight: 77 kg

DRUGS (20)
  1. ESTRA GEL [Concomitant]
     Dosage: 1.25 G, Q OTHER PM
  2. TIKOSYN [Suspect]
     Active Substance: DOFETILIDE
     Indication: ATRIAL FIBRILLATION
     Dosage: 500 UG
     Dates: start: 2013
  3. TIKOSYN [Suspect]
     Active Substance: DOFETILIDE
     Dosage: 375 UG, 2X/DAY
     Dates: start: 2013
  4. CHOLESTYRAMINE. [Concomitant]
     Active Substance: CHOLESTYRAMINE
     Dosage: 1 DF, 1X/DAY (PM)
  5. KCL [Concomitant]
     Active Substance: POTASSIUM CHLORIDE
     Dosage: 20 MEQ, 1X/DAY (AM)
  6. CALCIUM MAGNESIUM ZINC [Concomitant]
     Active Substance: CALCIUM\MAGNESIUM\ZINC
     Dosage: UNK, AM
  7. HYOSCYAMINE [Concomitant]
     Active Substance: HYOSCYAMINE
     Dosage: 0.125 UNK, AS NEEDED (PRN)
  8. LOVASTATIN. [Concomitant]
     Active Substance: LOVASTATIN
     Dosage: 20 MG,  (Q OTHER DAY)
  9. SYNTHROID [Concomitant]
     Active Substance: LEVOTHYROXINE SODIUM
     Dosage: 0.088 MG, 1X/DAY (AM)
  10. XARELTO [Concomitant]
     Active Substance: RIVAROXABAN
     Dosage: 20 MG, 1X/DAY (PM)
  11. CLONIDINE. [Concomitant]
     Active Substance: CLONIDINE
     Dosage: 0.1 MG, 1X/DAY (PM)
  12. FISH OIL OMEGA 3 [Concomitant]
     Dosage: 1200 MG, 1X/DAY (PM)
  13. VITAMIN D3 [Concomitant]
     Active Substance: CHOLECALCIFEROL
     Dosage: 5000 IU, 1X/DAY (AM)
  14. CARVEDILOL. [Concomitant]
     Active Substance: CARVEDILOL
     Dosage: 25 MG, 2X/DAY (AM/PM)
  15. LOSARTAN [Concomitant]
     Active Substance: LOSARTAN
     Dosage: 100 MG, 1X/DAY (AM)
  16. RESTASIS [Concomitant]
     Active Substance: CYCLOSPORINE
     Dosage: 1 GTT, 2X/DAY
  17. METOPROLOL TARTRATE. [Concomitant]
     Active Substance: METOPROLOL TARTRATE
     Indication: HEART RATE IRREGULAR
     Dosage: 50 MG, 2X/DAY (AM + PM)
  18. FUROSEMIDE. [Concomitant]
     Active Substance: FUROSEMIDE
     Dosage: 20 MG, 1X/DAY (AM)
  19. VITAMIN C [Concomitant]
     Active Substance: ASCORBIC ACID
     Dosage: 500 MG, 1X/DAY (AM)
  20. MULTIVITAMINS [Concomitant]
     Active Substance: VITAMINS
     Dosage: UNK; AM

REACTIONS (6)
  - Electrocardiogram QRS complex prolonged [Recovered/Resolved]
  - Cataract [Unknown]
  - Heart rate irregular [Recovered/Resolved]
  - Carpal tunnel syndrome [Unknown]
  - Cataract [Unknown]
  - Drug ineffective [Not Recovered/Not Resolved]

NARRATIVE: CASE EVENT DATE: 2013
